FAERS Safety Report 5999624-X (Version None)
Quarter: 2008Q4

REPORT INFORMATION
  Report Type: 
  Country: None (occurrence: None)
  Receive Date: 20081211
  Receipt Date: 20081211
  Transmission Date: 20090506
  Serious: Yes (Disabling)
  Sender: FDA-Public Use
  Company Number: None

PATIENT
  Sex: Female
  Weight: 52.6173 kg

DRUGS (1)
  1. REGLAN [Suspect]
     Indication: GASTROOESOPHAGEAL REFLUX DISEASE
     Dosage: I DON'T REMEMBER EXACTLY, BUT TOOK ON REGULAR BASIS FOR ACID REFLUX 2-3 YEARS

REACTIONS (1)
  - MUSCLE DISORDER [None]
